FAERS Safety Report 24658329 (Version 1)
Quarter: 2024Q4

REPORT INFORMATION
  Report Type: Spontaneous
  Country: SA (occurrence: SA)
  Receive Date: 20241125
  Receipt Date: 20241125
  Transmission Date: 20250114
  Serious: Yes (Other)
  Sender: AUROBINDO
  Company Number: SA-MLMSERVICE-20241104-PI249404-00230-1

PATIENT
  Age: 19 Year
  Sex: Female

DRUGS (5)
  1. MOXIFLOXACIN [Suspect]
     Active Substance: MOXIFLOXACIN
     Indication: Disseminated tuberculosis
     Dosage: UNK
     Route: 065
  2. ETHAMBUTOL [Suspect]
     Active Substance: ETHAMBUTOL HYDROCHLORIDE
     Indication: Disseminated tuberculosis
     Dosage: 800 MILLIGRAM, ONCE A DAY
     Route: 065
  3. RIFAMPIN [Suspect]
     Active Substance: RIFAMPIN
     Indication: Disseminated tuberculosis
     Dosage: 600 MILLIGRAM, ONCE A DAY
     Route: 065
  4. ISONIAZID [Suspect]
     Active Substance: ISONIAZID
     Indication: Disseminated tuberculosis
     Dosage: 300 MILLIGRAM, ONCE A DAY
     Route: 065
  5. PYRAZINAMIDE [Suspect]
     Active Substance: PYRAZINAMIDE
     Indication: Disseminated tuberculosis
     Dosage: 1000 MILLIGRAM, ONCE A DAY
     Route: 065

REACTIONS (3)
  - Abscess limb [Recovered/Resolved]
  - Cutaneous tuberculosis [Recovered/Resolved]
  - Paradoxical drug reaction [Recovered/Resolved]
